FAERS Safety Report 12105624 (Version 1)
Quarter: 2016Q1

REPORT INFORMATION
  Report Type: Spontaneous
  Country: DK (occurrence: DK)
  Receive Date: 20160223
  Receipt Date: 20160223
  Transmission Date: 20160526
  Serious: Yes (Other)
  Sender: FDA-Public Use
  Company Number: DK-ABBVIE-16P-044-1566268-00

PATIENT
  Sex: Female

DRUGS (3)
  1. DEPAKENE [Suspect]
     Active Substance: VALPROIC ACID
     Indication: EPILEPSY
     Dosage: TABLET, EXTENDED RELEASE
     Route: 065
     Dates: start: 2000
  2. DEPAKENE [Suspect]
     Active Substance: VALPROIC ACID
     Dosage: TABLET, EXTENDED RELEASE
     Route: 065
     Dates: start: 2006
  3. DEPAKENE [Suspect]
     Active Substance: VALPROIC ACID
     Dosage: TABLET, EXTENDED RELEASE
     Route: 065
     Dates: start: 2008

REACTIONS (3)
  - Abortion induced [Unknown]
  - Foetal death [Unknown]
  - Exposure during pregnancy [Unknown]

NARRATIVE: CASE EVENT DATE: 2008
